FAERS Safety Report 10562352 (Version 1)
Quarter: 2014Q4

REPORT INFORMATION
  Report Type: Spontaneous
  Country: IT (occurrence: None)
  Receive Date: 20141031
  Receipt Date: 20141031
  Transmission Date: 20150529
  Serious: Yes (Hospitalization, Other)
  Sender: FDA-Public Use
  Company Number: B0992514A

PATIENT
  Age: 82 Year
  Sex: Male
  Weight: 65 kg

DRUGS (4)
  1. DOLUTEGRAVIR [Suspect]
     Active Substance: DOLUTEGRAVIR
     Indication: HIV INFECTION
     Route: 048
     Dates: start: 20130502, end: 20140430
  2. RITONAVIR. [Concomitant]
     Active Substance: RITONAVIR
  3. SAQUINAVIR [Concomitant]
     Active Substance: SAQUINAVIR
  4. DARUNAVIR [Concomitant]
     Active Substance: DARUNAVIR

REACTIONS (30)
  - Liver disorder [None]
  - Vomiting [None]
  - Urinary tract infection [None]
  - Virologic failure [None]
  - Renal cell carcinoma [None]
  - Renal failure [None]
  - Enterococcus test positive [None]
  - Hypertension [None]
  - Dysuria [None]
  - Infection [None]
  - Lung consolidation [None]
  - Ill-defined disorder [None]
  - Haematuria [None]
  - Arthralgia [None]
  - Metastases to bone [None]
  - Calculus urethral [None]
  - Asthenia [None]
  - Anaemia [None]
  - Pyrexia [None]
  - Metastases to spleen [None]
  - Hydronephrosis [None]
  - Acute kidney injury [None]
  - Chronic respiratory failure [None]
  - General physical health deterioration [None]
  - Pain [None]
  - Bone pain [None]
  - Decreased appetite [None]
  - Nephrolithiasis [None]
  - Prostate cancer metastatic [None]
  - Urethral operation [None]

NARRATIVE: CASE EVENT DATE: 201306
